FAERS Safety Report 17327258 (Version 1)
Quarter: 2020Q1

REPORT INFORMATION
  Report Type: Spontaneous
  Country: US (occurrence: US)
  Receive Date: 20200127
  Receipt Date: 20200127
  Transmission Date: 20200409
  Serious: No
  Sender: FDA-Public Use
  Company Number: US-REGENERON PHARMACEUTICALS, INC.-2019-35725

PATIENT

DRUGS (13)
  1. ENZYMES NOS [Concomitant]
     Indication: GASTROINTESTINAL DISORDER
     Dosage: UNK
  2. BABY ASPIRIN [Concomitant]
     Active Substance: ASPIRIN
     Indication: COAGULOPATHY
     Dosage: 2
  3. VITAMIN D                          /00107901/ [Concomitant]
     Active Substance: ERGOCALCIFEROL
     Indication: PRODUCT USED FOR UNKNOWN INDICATION
     Dosage: UNK
  4. EYLEA [Suspect]
     Active Substance: AFLIBERCEPT
     Indication: RETINAL VEIN OCCLUSION
     Dosage: 2MG, EVERY 6 WEEKS, IN THE LEFT EYE
     Route: 031
     Dates: start: 20190409
  5. EYLEA [Suspect]
     Active Substance: AFLIBERCEPT
     Dosage: 2MG, EVERY 6 WEEKS, IN THE LEFT EYE, LAST DOSE
     Route: 031
     Dates: start: 20190521, end: 20190521
  6. EYLEA [Suspect]
     Active Substance: AFLIBERCEPT
     Dosage: 2MG, CURRENTLY 8-10 WEEKS
     Route: 031
  7. METFORMIN [Concomitant]
     Active Substance: METFORMIN HYDROCHLORIDE
     Indication: DIABETES MELLITUS
  8. PROBIOTICS NOS [Concomitant]
     Active Substance: PROBIOTICS NOS
     Indication: DIVERTICULITIS
     Dosage: UNK
     Dates: start: 201806
  9. EYE DROPS                          /00256502/ [Concomitant]
     Active Substance: OXYMETAZOLINE
     Indication: DRY EYE
     Dosage: UNK
  10. FELODIPINE. [Concomitant]
     Active Substance: FELODIPINE
     Indication: BLOOD PRESSURE ABNORMAL
     Dosage: 5 MG, AT NIGHT
  11. PULMICORT TURBUHALER [Concomitant]
     Active Substance: BUDESONIDE
     Indication: PRODUCT USED FOR UNKNOWN INDICATION
     Dosage: 2 PUFFS IN THE MORNING AND 2 PUFF IN THE EVENING
  12. SEREVENT DISKUS [Concomitant]
     Active Substance: SALMETEROL XINAFOATE
     Indication: PRODUCT USED FOR UNKNOWN INDICATION
     Dosage: 1 PUFF IN THE MORNING AND 1 PUFF IN THE EVENING
  13. ATACAND [Concomitant]
     Active Substance: CANDESARTAN CILEXETIL
     Indication: BLOOD PRESSURE ABNORMAL
     Dosage: 32 MG, 1 EVERY DAY (IN THE MORNING)

REACTIONS (4)
  - Laryngitis [Not Recovered/Not Resolved]
  - Sinus disorder [Recovered/Resolved]
  - Hypersensitivity [Unknown]
  - Nasopharyngitis [Recovered/Resolved]

NARRATIVE: CASE EVENT DATE: 2019
